FAERS Safety Report 9761011 (Version 1)
Quarter: 2013Q4

REPORT INFORMATION
  Report Type: Spontaneous
  Country: US (occurrence: US)
  Receive Date: 20131216
  Receipt Date: 20131216
  Transmission Date: 20140711
  Serious: No
  Sender: FDA-Public Use
  Company Number: US-PFIZER INC-2013356959

PATIENT
  Age: 56 Year
  Sex: Female

DRUGS (10)
  1. XELJANZ [Suspect]
     Indication: RHEUMATOID ARTHRITIS
     Dosage: 5 MG, 1X/DAY (FOR 1 TO 2 WEEKS)
     Dates: start: 20131114
  2. PREDNISONE [Concomitant]
     Dosage: UNK
  3. ARAVA [Concomitant]
     Dosage: UNK
  4. FOLIC ACID [Concomitant]
     Dosage: UNK
  5. FORMOTEROL FUMARATE/MOMETASONE FUROATE [Concomitant]
     Dosage: UNK
  6. TRAZODONE [Concomitant]
     Dosage: UNK
  7. NYSTATIN [Concomitant]
     Dosage: UNK
  8. MELATONIN [Concomitant]
     Dosage: UNK
  9. LORATADINE [Concomitant]
     Dosage: UNK
  10. TRAMADOL [Concomitant]
     Dosage: UNK

REACTIONS (4)
  - Hypoaesthesia oral [Unknown]
  - Glossodynia [Unknown]
  - Headache [Unknown]
  - Blood pressure increased [Unknown]
